FAERS Safety Report 19563731 (Version 1)
Quarter: 2021Q3

REPORT INFORMATION
  Report Type: Spontaneous
  Country: US (occurrence: US)
  Receive Date: 20210716
  Receipt Date: 20210716
  Transmission Date: 20211014
  Serious: Yes (Death)
  Sender: FDA-Public Use
  Company Number: None

PATIENT
  Age: 57 Year
  Sex: Male
  Weight: 71.2 kg

DRUGS (13)
  1. SENNA 8.6MG [Concomitant]
  2. MODERNA COVID?19 VACCINE [Concomitant]
     Active Substance: CX-024414
  3. OLANZAPINE 5MG [Concomitant]
     Active Substance: OLANZAPINE
  4. BRAFTOVI [Suspect]
     Active Substance: ENCORAFENIB
     Indication: SKIN CANCER
     Route: 048
     Dates: start: 20180915, end: 20210716
  5. FENTANYL 25MCG/HR [Concomitant]
  6. MEKTOVI [Suspect]
     Active Substance: BINIMETINIB
     Indication: SKIN CANCER
     Route: 048
     Dates: start: 20180915, end: 20210716
  7. ACTEMRA ACTPEN [Concomitant]
     Active Substance: TOCILIZUMAB
  8. MULTIVITAMIN [Concomitant]
     Active Substance: VITAMINS
  9. ALFUZOSIN HCL ER 10MG [Concomitant]
  10. PREDNISONE 10MG [Concomitant]
     Active Substance: PREDNISONE
  11. HYDROMORPHONE 2MG [Concomitant]
     Active Substance: HYDROMORPHONE
  12. METOCLOPRAMIDE 10MG [Concomitant]
     Active Substance: METOCLOPRAMIDE
  13. POLYETHYLENE GLYCOL 3350. [Concomitant]
     Active Substance: POLYETHYLENE GLYCOL 3350

REACTIONS (1)
  - Death [None]

NARRATIVE: CASE EVENT DATE: 20210716
